FAERS Safety Report 25584925 (Version 1)
Quarter: 2025Q3

REPORT INFORMATION
  Report Type: Spontaneous
  Country: US (occurrence: None)
  Receive Date: 20250717
  Receipt Date: 20250717
  Transmission Date: 20251020
  Serious: Yes (Other)
  Sender: FDA-CTU
  Company Number: None

PATIENT
  Age: 61 Year
  Sex: Female
  Weight: 54.45 kg

DRUGS (3)
  1. GLYCERIN\MENTHOL\XYLITOL [Suspect]
     Active Substance: GLYCERIN\MENTHOL\XYLITOL
     Indication: Dental care
     Dosage: OTHER QUANTITY : 1 OUNCE(S)?FREQUENCY : TWICE A DAY?
     Dates: start: 20250120
  2. UNAPPROVED DRUG COSMETIC PRODUCTS [Suspect]
     Active Substance: UNAPPROVED DRUG COSMETIC PRODUCTS
  3. SODIUM FLUORIDE [Suspect]
     Active Substance: SODIUM FLUORIDE

REACTIONS (2)
  - Dry mouth [None]
  - Product formulation issue [None]

NARRATIVE: CASE EVENT DATE: 20250120
